FAERS Safety Report 23148968 (Version 1)
Quarter: 2023Q4

REPORT INFORMATION
  Report Type: Spontaneous
  Country: US (occurrence: US)
  Receive Date: 20231106
  Receipt Date: 20231106
  Transmission Date: 20240110
  Serious: Yes (Hospitalization, Other)
  Sender: FDA-Public Use
  Company Number: US-TEVA-2023-US-2942165

PATIENT
  Age: 7 Decade
  Sex: Female

DRUGS (6)
  1. METHOTREXATE [Suspect]
     Active Substance: METHOTREXATE
     Indication: Metastases to meninges
     Dosage: 12MG WEEKLY  INITIATED ON CYCLE 1 DAY 27; THROUGH OMMAYA RESERVOIR
     Route: 037
  2. DEXAMETHASONE [Suspect]
     Active Substance: DEXAMETHASONE
     Indication: Metastases to meninges
     Dosage: 4MG EVERY 6 HOURS
     Route: 042
  3. ABEMACICLIB [Suspect]
     Active Substance: ABEMACICLIB
     Indication: Metastases to meninges
     Dosage: 300 MILLIGRAM DAILY; DISCONTINUED ON CYCLE 1 DAY 15 AND LATER RE-INITIATED IN WEEK 10 OF METHOTREXAT
     Route: 048
  4. ABEMACICLIB [Suspect]
     Active Substance: ABEMACICLIB
     Indication: Metastases to lymph nodes
  5. EXEMESTANE [Concomitant]
     Active Substance: EXEMESTANE
     Indication: Invasive ductal breast carcinoma
     Route: 065
  6. FULVESTRANT [Concomitant]
     Active Substance: FULVESTRANT
     Indication: Metastases to lymph nodes
     Dosage: 500 MG ONCE IN 28 DAYS WITH A LOADING DOSE ON CYCLE 1 DAY 15
     Route: 030

REACTIONS (5)
  - Pancytopenia [Recovering/Resolving]
  - Malaise [Recovering/Resolving]
  - Asthenia [Recovering/Resolving]
  - Mouth ulceration [Recovering/Resolving]
  - Drug ineffective [Unknown]
